FAERS Safety Report 9090402 (Version 3)
Quarter: 2013Q2

REPORT INFORMATION
  Report Type: Report from Study
  Country: US (occurrence: US)
  Receive Date: 20130201
  Receipt Date: 20130503
  Transmission Date: 20140414
  Serious: Yes (Other)
  Sender: FDA-Public Use
  Company Number: US-ABBOTT-13P-163-1043947-00

PATIENT
  Age: 33 Year
  Sex: Female
  Weight: 75.82 kg

DRUGS (3)
  1. HUMIRA [Suspect]
     Indication: RHEUMATOID ARTHRITIS
     Dates: start: 20120502, end: 201206
  2. HUMIRA [Suspect]
  3. PLAQUENIL [Concomitant]
     Indication: PRODUCT USED FOR UNKNOWN INDICATION

REACTIONS (3)
  - Abortion spontaneous [Unknown]
  - Inappropriate schedule of drug administration [Unknown]
  - Rheumatoid arthritis [Unknown]
